FAERS Safety Report 19361060 (Version 2)
Quarter: 2021Q4

REPORT INFORMATION
  Report Type: Spontaneous
  Country: JP (occurrence: JP)
  Receive Date: 20210602
  Receipt Date: 20211001
  Transmission Date: 20220303
  Serious: Yes (Life-Threatening, Hospitalization)
  Sender: FDA-Public Use
  Company Number: 2021A476353

PATIENT
  Age: 26969 Day
  Sex: Female
  Weight: 55 kg

DRUGS (21)
  1. IMFINZI [Suspect]
     Active Substance: DURVALUMAB
     Indication: Non-small cell lung cancer
     Route: 042
     Dates: start: 20210422, end: 20210422
  2. VOLTAREN [Suspect]
     Active Substance: DICLOFENAC SODIUM
     Indication: Lumbar spinal stenosis
     Dosage: 25 MG, AS REQUIRED
     Route: 048
     Dates: end: 20210506
  3. CELECOXIB [Suspect]
     Active Substance: CELECOXIB
     Indication: Lumbar spinal stenosis
     Route: 048
     Dates: end: 20210506
  4. PRIMPERAN [Concomitant]
     Active Substance: METOCLOPRAMIDE HYDROCHLORIDE
     Indication: Vomiting
     Dosage: 5 MG, AS REQUIRED
     Route: 048
     Dates: start: 20210302
  5. ALLOID G [Concomitant]
     Active Substance: SODIUM ALGINATE
     Indication: Radiation oesophagitis
     Route: 048
     Dates: start: 20210414, end: 20210506
  6. DILTIAZEM HYDROCHLORIDE [Concomitant]
     Active Substance: DILTIAZEM HYDROCHLORIDE
     Indication: Prinzmetal angina
     Route: 048
  7. ISOSORBIDE MONONITRATE [Concomitant]
     Active Substance: ISOSORBIDE MONONITRATE
     Indication: Prinzmetal angina
     Route: 048
  8. ATORVASTATIN [Concomitant]
     Active Substance: ATORVASTATIN
     Indication: Dyslipidaemia
     Route: 048
     Dates: end: 20210506
  9. ZOPICLONE [Concomitant]
     Active Substance: ZOPICLONE
     Indication: Insomnia
     Route: 048
  10. MYONAL [Concomitant]
     Indication: Lumbar spinal stenosis
     Route: 048
     Dates: end: 20210506
  11. LIMAPROST [Concomitant]
     Active Substance: LIMAPROST
     Indication: Lumbar spinal stenosis
     Route: 048
     Dates: end: 20210506
  12. METHYLCOBALAMIN [Concomitant]
     Active Substance: METHYLCOBALAMIN
     Indication: Lumbar spinal stenosis
     Route: 048
     Dates: end: 20210506
  13. PURSENNID [Concomitant]
     Indication: Constipation
     Route: 048
  14. MAGNESIUM OXIDE [Concomitant]
     Active Substance: MAGNESIUM OXIDE
     Indication: Constipation
     Route: 048
  15. LINZESS [Concomitant]
     Active Substance: LINACLOTIDE
     Indication: Constipation
     Route: 048
  16. RABEPRAZOLE SODIUM [Concomitant]
     Active Substance: RABEPRAZOLE SODIUM
     Indication: Gastrooesophageal reflux disease
     Route: 048
     Dates: end: 20210506
  17. REBAMIPIDE [Concomitant]
     Active Substance: REBAMIPIDE
     Indication: Gastrooesophageal reflux disease
     Route: 048
     Dates: end: 20210506
  18. MIYA-BM [Concomitant]
     Active Substance: CLOSTRIDIUM BUTYRICUM SPORES STRAIN M-55
     Indication: Diarrhoea
     Route: 048
     Dates: end: 20210506
  19. AMBROXOL HYDROCHLORIDE [Concomitant]
     Active Substance: AMBROXOL HYDROCHLORIDE
     Indication: Asthma
     Route: 048
  20. MONTELUKAST [Concomitant]
     Active Substance: MONTELUKAST SODIUM
     Indication: Asthma
     Route: 048
     Dates: end: 20210506
  21. KETOTIFEN [Concomitant]
     Active Substance: KETOTIFEN
     Indication: Asthma
     Route: 048
     Dates: end: 20210506

REACTIONS (2)
  - Immune-mediated hepatic disorder [Recovering/Resolving]
  - Tubulointerstitial nephritis [Recovering/Resolving]

NARRATIVE: CASE EVENT DATE: 20210429
